FAERS Safety Report 8887832 (Version 1)
Quarter: 2012Q4

REPORT INFORMATION
  Report Type: Spontaneous
  Country: US (occurrence: None)
  Receive Date: 20121101
  Receipt Date: 20121101
  Transmission Date: 20130627
  Serious: No
  Sender: FDA-Public Use
  Company Number: None

PATIENT
  Age: 61 Year
  Sex: Male
  Weight: 85.8 kg

DRUGS (2)
  1. DEXAMETHASONE [Suspect]
     Indication: VOMITING POST CHEMOTHERAPY
     Dosage: NARRATIVE PARTIALLY ILLEGIBLE
4 mg per tablet  / day oral
     Route: 048
     Dates: start: 201210
  2. DEXAMETHASONE [Suspect]
     Indication: NAUSEA POST CHEMOTHERAPY
     Dosage: NARRATIVE PARTIALLY ILLEGIBLE
4 mg per tablet  / day oral
     Route: 048
     Dates: start: 201210

REACTIONS (3)
  - Acne [None]
  - Hiccups [None]
  - Reaction to drug excipients [None]
